FAERS Safety Report 9295792 (Version 1)
Quarter: 2013Q1

REPORT INFORMATION
  Report Type: Spontaneous
  Country: US (occurrence: None)
  Receive Date: 20130107
  Receipt Date: 20130107
  Transmission Date: 20140127
  Serious: Yes (Hospitalization)
  Sender: FDA-Public Use
  Company Number: PHHY2012US102731

PATIENT
  Age: 61 Year
  Sex: Female
  Weight: 77.1 kg

DRUGS (13)
  1. GILENYA [Suspect]
     Indication: MULTIPLE SCLEROSIS
     Route: 048
     Dates: start: 20120120
  2. CYMBALTA (DULOXETINE HYDROCHLORIDE) [Concomitant]
  3. VITAMIN B12 (CYANOCOBALAMIN) [Concomitant]
  4. VITAMIN C [Concomitant]
  5. CLONAZEPAM (CLONAZEPAM) (CLONAZEPAM) [Concomitant]
  6. XANAX (ALPRAZOLAM) [Concomitant]
  7. FLEXERIL (CYCLOBENAZPEINE HYDROCHLORIDE) [Concomitant]
  8. NEURONTIN (GABAPENTIN) [Concomitant]
  9. DRISDOL (ERGOCALCIFEROL) [Concomitant]
  10. ADDERALL XR (AMFETAMINE ASPARTATE, AMFETAMINE SULFATE, DEXAMFETAMINE SACCHARATE, DEXAMFETAMINE SULFATE) [Concomitant]
  11. REMERON (MIRTAZAPINE) [Concomitant]
  12. ROBAXIN (METHOCARBAMOL) [Concomitant]
  13. VITAMIN E (TOCOPHEROL) [Concomitant]

REACTIONS (4)
  - Depression [None]
  - Confusional state [None]
  - Dry eye [None]
  - Hypophagia [None]
